FAERS Safety Report 10007107 (Version 2)
Quarter: 2014Q1

REPORT INFORMATION
  Report Type: Spontaneous
  Country: US (occurrence: US)
  Receive Date: 20140313
  Receipt Date: 20140313
  Transmission Date: 20141002
  Serious: No
  Sender: FDA-Public Use
  Company Number: US-GILEAD-2013-0068925

PATIENT
  Age: 62 Year
  Sex: Female

DRUGS (9)
  1. LETAIRIS [Suspect]
     Indication: PULMONARY ARTERIAL HYPERTENSION
     Dosage: 5 MG, QD
     Dates: start: 20130107, end: 20130311
  2. PLAVIX [Concomitant]
  3. APLENZIN [Concomitant]
  4. ATORVASTATIN [Concomitant]
  5. CYMBALTA [Concomitant]
  6. PREVACID [Concomitant]
  7. SPIRONOLACTONE [Concomitant]
  8. AMLODIPINE [Concomitant]
  9. BYSTOLIC [Concomitant]

REACTIONS (2)
  - Oedema peripheral [Unknown]
  - Fluid retention [Unknown]
